FAERS Safety Report 6366524-5 (Version None)
Quarter: 2009Q3

REPORT INFORMATION
  Report Type: 
  Country: None (occurrence: None)
  Receive Date: 20090921
  Receipt Date: 20090908
  Transmission Date: 20100115
  Serious: Yes (Hospitalization, Other)
  Sender: FDA-Public Use
  Company Number: FR-BAYER-200931828GPV

PATIENT
  Age: 67 Year
  Sex: Male

DRUGS (7)
  1. CIFLOX [Suspect]
     Indication: DRUG USE FOR UNKNOWN INDICATION
     Route: 042
     Dates: start: 20090703, end: 20090712
  2. HEPARINE SODIQUE PANPHARMA [Suspect]
     Indication: THROMBOSIS
     Route: 042
     Dates: start: 20090703, end: 20090713
  3. CLAVENTIN [Suspect]
     Indication: DRUG USE FOR UNKNOWN INDICATION
     Dosage: 5 G/200 MG (CLAVULANATE POTASSIUM, TICARCILLIN DISODIUM)
     Route: 042
     Dates: start: 20090703, end: 20090712
  4. DEROXAT [Concomitant]
     Indication: DRUG USE FOR UNKNOWN INDICATION
     Route: 065
  5. SERESTA [Concomitant]
     Indication: DRUG USE FOR UNKNOWN INDICATION
     Route: 065
  6. HAVLANE [Concomitant]
     Indication: DRUG USE FOR UNKNOWN INDICATION
     Route: 065
  7. ORGARAN [Concomitant]
     Indication: THROMBOSIS
     Route: 065
     Dates: start: 20090713, end: 20090724

REACTIONS (4)
  - DEEP VEIN THROMBOSIS [None]
  - HEPARIN-INDUCED THROMBOCYTOPENIA [None]
  - PULMONARY EMBOLISM [None]
  - THROMBOSIS [None]
